FAERS Safety Report 5102910-9 (Version None)
Quarter: 2006Q3

REPORT INFORMATION
  Report Type: 
  Country: None (occurrence: None)
  Receive Date: 20060908
  Receipt Date: 20060828
  Transmission Date: 20061208
  Serious: Yes (Other)
  Sender: FDA-Public Use
  Company Number: HQWYE214014JUL05

PATIENT
  Age: 59 Year
  Sex: Female

DRUGS (2)
  1. PREMPRO [Suspect]
     Indication: HORMONE REPLACEMENT THERAPY
     Dosage: ORAL
     Route: 048
     Dates: start: 19700101, end: 20020101
  2. PREMARIN [Suspect]

REACTIONS (8)
  - BREAST CANCER FEMALE [None]
  - BREAST CANCER METASTATIC [None]
  - COMPUTERISED TOMOGRAM ABNORMAL [None]
  - HEPATIC CYST [None]
  - METASTASES TO LYMPH NODES [None]
  - MONARTHRITIS [None]
  - RENAL CYST [None]
  - UTERINE DISORDER [None]
